FAERS Safety Report 8976776 (Version 1)
Quarter: 2012Q4

REPORT INFORMATION
  Report Type: 
  Country: US (occurrence: US)
  Receive Date: 20121219
  Receipt Date: 20121219
  Transmission Date: 20130627
  Serious: No
  Sender: FDA-Public Use
  Company Number: US-AMGEN-USASP2012055186

PATIENT
  Sex: Female
  Weight: 58.96 kg

DRUGS (3)
  1. PROLIA [Suspect]
     Indication: OSTEOPOROSIS POSTMENOPAUSAL
     Dosage: UNK UNK, q6mo
     Route: 030
     Dates: start: 20120620
  2. HYDROCORTISONE [Concomitant]
     Indication: FATIGUE
     Dosage: 10 mg, bid
     Route: 048
     Dates: start: 20110211
  3. PROMETRIUM                         /00110701/ [Concomitant]
     Indication: INSOMNIA
     Dosage: 100 mg, qhs
     Route: 048
     Dates: start: 20120523

REACTIONS (2)
  - Musculoskeletal stiffness [Unknown]
  - Pain in extremity [Unknown]
